FAERS Safety Report 17193375 (Version 1)
Quarter: 2019Q4

REPORT INFORMATION
  Report Type: Spontaneous
  Country: US (occurrence: US)
  Receive Date: 20191223
  Receipt Date: 20191223
  Transmission Date: 20200122
  Serious: Yes (Hospitalization)
  Sender: FDA-Public Use
  Company Number: US-CELGENEUS-USA-20191207284

PATIENT
  Age: 68 Year
  Sex: Female

DRUGS (6)
  1. CARBOXYMETHYLCELLULOSE [Concomitant]
     Active Substance: CARBOXYMETHYLCELLULOSE
     Indication: IMMUNE TOLERANCE INDUCTION
     Dosage: .5 PERCENT
     Route: 065
     Dates: start: 201811, end: 201811
  2. POMALIDOMIDE [Suspect]
     Active Substance: POMALIDOMIDE
     Indication: PLASMA CELL MYELOMA
     Dosage: 4 MILLIGRAM
     Route: 048
     Dates: start: 201807, end: 201808
  3. POMALIDOMIDE [Suspect]
     Active Substance: POMALIDOMIDE
     Dosage: 0.001 -1 MG/ML
     Route: 048
     Dates: start: 201811, end: 201811
  4. TWEEN 80 [Concomitant]
     Indication: IMMUNE TOLERANCE INDUCTION
     Dosage: .25 PERCENT
     Route: 065
     Dates: start: 201811, end: 201811
  5. POMALIDOMIDE [Suspect]
     Active Substance: POMALIDOMIDE
     Dosage: 4 MILLIGRAM
     Route: 048
     Dates: start: 201811
  6. STERILE WATER [Concomitant]
     Active Substance: WATER
     Indication: IMMUNE TOLERANCE INDUCTION
     Dosage: 200 MILLILITER
     Route: 065
     Dates: start: 201811, end: 201811

REACTIONS (1)
  - Urticaria [Recovered/Resolved]

NARRATIVE: CASE EVENT DATE: 201807
